FAERS Safety Report 20764349 (Version 1)
Quarter: 2022Q2

REPORT INFORMATION
  Report Type: Report from Study
  Country: BR (occurrence: BR)
  Receive Date: 20220428
  Receipt Date: 20220428
  Transmission Date: 20220721
  Serious: Yes (Other)
  Sender: FDA-Public Use
  Company Number: BR-JNJFOC-20220441381

PATIENT
  Sex: Female
  Weight: 51 kg

DRUGS (2)
  1. INFLIXIMAB [Suspect]
     Active Substance: INFLIXIMAB
     Indication: Crohn^s disease
     Route: 042
  2. CORTISONE [Suspect]
     Active Substance: CORTISONE
     Indication: Product used for unknown indication
     Route: 065

REACTIONS (6)
  - Glaucoma [Unknown]
  - Uveitis [Unknown]
  - Cataract [Unknown]
  - Nervous system neoplasm [Unknown]
  - Mesenteric neoplasm [Unknown]
  - Cyst [Unknown]
